FAERS Safety Report 4434386-9 (Version None)
Quarter: 2004Q3

REPORT INFORMATION
  Report Type: 
  Country: None (occurrence: None)
  Receive Date: 20040825
  Receipt Date: 20040810
  Transmission Date: 20050211
  Serious: Yes (Death, Hospitalization)
  Sender: FDA-Public Use
  Company Number: 04P-163-0264948-00

PATIENT
  Age: 73 Year
  Sex: Female

DRUGS (12)
  1. HUMIRA [Suspect]
     Indication: RHEUMATOID ARTHRITIS
     Dosage: 40 MG , SUBCUTANEOUS
     Route: 058
     Dates: start: 20030101
  2. METHOTREXATE [Concomitant]
  3. RABEPRAZOLE SODIUM [Concomitant]
  4. FOLIC ACID [Concomitant]
  5. FERROUS GLUCONATE [Concomitant]
  6. CALCIUM CARBONATE [Concomitant]
  7. IRBESARTAN [Concomitant]
  8. CALCITRIOL [Concomitant]
  9. ACETYLSALICYLIC ACID [Concomitant]
  10. POTASSIUM [Concomitant]
  11. PREDNISONE [Concomitant]
  12. LEVOTHYROXINE SODIUM [Concomitant]

REACTIONS (2)
  - GALLBLADDER DISORDER [None]
  - INFECTION [None]
